FAERS Safety Report 11145461 (Version 1)
Quarter: 2015Q2

REPORT INFORMATION
  Report Type: Spontaneous
  Country: JP (occurrence: JP)
  Receive Date: 20150528
  Receipt Date: 20150528
  Transmission Date: 20150821
  Serious: Yes (Hospitalization)
  Sender: FDA-Public Use
  Company Number: PHJP2015JP003929

PATIENT
  Age: 77 Year
  Sex: Female

DRUGS (2)
  1. EXELON PATCH [Suspect]
     Active Substance: RIVASTIGMINE
     Indication: DEMENTIA ALZHEIMER^S TYPE
     Dosage: 9.5 MG/24HOURS (18 MG DAILY RIVASTIGMINE BASE/ PATCH 10 CM2)
     Route: 062
     Dates: start: 20141121, end: 20150131
  2. EXELON PATCH [Suspect]
     Active Substance: RIVASTIGMINE
     Dosage: 9.5 MG/24HOURS (18 MG DAILY RIVASTIGMINE BASE/ PATCH 10 CM2)
     Route: 062
     Dates: start: 20150220

REACTIONS (4)
  - Jaundice [Unknown]
  - Asthenia [Unknown]
  - Vomiting [Unknown]
  - Malaise [Unknown]

NARRATIVE: CASE EVENT DATE: 20150129
